FAERS Safety Report 21865555 (Version 3)
Quarter: 2023Q1

REPORT INFORMATION
  Report Type: Spontaneous
  Country: CH (occurrence: CH)
  Receive Date: 20230116
  Receipt Date: 20230210
  Transmission Date: 20230417
  Serious: Yes (Other)
  Sender: FDA-Public Use
  Company Number: CH-ORGANON-O2301CHE000305

PATIENT
  Sex: Male
  Weight: 77 kg

DRUGS (5)
  1. EZETIMIBE\SIMVASTATIN [Suspect]
     Active Substance: EZETIMIBE\SIMVASTATIN
     Indication: Dyslipidaemia
     Dosage: 1-0-0
     Route: 048
     Dates: start: 2008, end: 202301
  2. EZETIMIBE\SIMVASTATIN [Suspect]
     Active Substance: EZETIMIBE\SIMVASTATIN
     Indication: Type IIa hyperlipidaemia
  3. ZYRTEC [Concomitant]
     Active Substance: CETIRIZINE HYDROCHLORIDE
     Indication: Hypersensitivity
     Dosage: 1-0-0 (MANY YEARS AGO)
  4. ASPIRIN [Concomitant]
     Active Substance: ASPIRIN
     Indication: Prophylaxis
     Dosage: 1-0-0 (MANY YEARS AGO)
  5. ALLOPURINOL [Concomitant]
     Active Substance: ALLOPURINOL
     Indication: Hyperuricaemia
     Dosage: 1-0-0 (APPROX. 10 YEARS)
     Dates: start: 2013

REACTIONS (2)
  - Bladder cancer [Unknown]
  - Normochromic normocytic anaemia [Not Recovered/Not Resolved]

NARRATIVE: CASE EVENT DATE: 20200101
